FAERS Safety Report 17225170 (Version 1)
Quarter: 2020Q1

REPORT INFORMATION
  Report Type: Spontaneous
  Country: US (occurrence: US)
  Receive Date: 20200101
  Receipt Date: 20200101
  Transmission Date: 20200409
  Serious: Yes (Other)
  Sender: FDA-Public Use
  Company Number: None

PATIENT
  Age: 67 Year
  Sex: Female
  Weight: 99 kg

DRUGS (6)
  1. CHLORHEXIDINE PRESURGERY SCRUB [Suspect]
     Active Substance: CHLORHEXIDINE GLUCONATE
     Indication: ANTIBIOTIC PROPHYLAXIS
     Dates: start: 20150331, end: 20150401
  2. OLMESARTAN [Concomitant]
     Active Substance: OLMESARTAN
  3. POTASSIUM [Concomitant]
     Active Substance: POTASSIUM
  4. METOPROLOL. [Concomitant]
     Active Substance: METOPROLOL
  5. IRON [Concomitant]
     Active Substance: IRON
  6. VITAMIN B12 [Concomitant]
     Active Substance: CYANOCOBALAMIN

REACTIONS (4)
  - Drug hypersensitivity [None]
  - Pain of skin [None]
  - Skin burning sensation [None]
  - Erythema [None]

NARRATIVE: CASE EVENT DATE: 20150401
